FAERS Safety Report 13978426 (Version 2)
Quarter: 2017Q4

REPORT INFORMATION
  Report Type: Spontaneous
  Country: AR (occurrence: AR)
  Receive Date: 20170915
  Receipt Date: 20171002
  Transmission Date: 20180321
  Serious: Yes (Life-Threatening, Hospitalization)
  Sender: FDA-Public Use
  Company Number: AR-B.I. PHARMACEUTICALS,INC./RIDGEFIELD-2017-BI-050497

PATIENT
  Age: 74 Year
  Sex: Male
  Weight: 75 kg

DRUGS (2)
  1. PRADAXA [Suspect]
     Active Substance: DABIGATRAN ETEXILATE MESYLATE
     Indication: ATRIAL FIBRILLATION
     Route: 048
     Dates: start: 201703, end: 20170912
  2. DIONDEL [Concomitant]
     Indication: ATRIAL FIBRILLATION
     Route: 065

REACTIONS (4)
  - Cardiac failure [Recovered/Resolved]
  - Fluid overload [Recovered/Resolved]
  - Blood urine present [Recovered/Resolved]
  - Acute kidney injury [Recovered/Resolved]

NARRATIVE: CASE EVENT DATE: 20170912
